FAERS Safety Report 18683459 (Version 2)
Quarter: 2021Q1

REPORT INFORMATION
  Report Type: Spontaneous
  Country: JP (occurrence: JP)
  Receive Date: 20201230
  Receipt Date: 20210203
  Transmission Date: 20210419
  Serious: Yes (Death, Hospitalization, Other)
  Sender: FDA-Public Use
  Company Number: JP-009507513-2012JPN003238J

PATIENT
  Age: 76 Year
  Sex: Male
  Weight: 69 kg

DRUGS (3)
  1. CARBOPLATIN. [Suspect]
     Active Substance: CARBOPLATIN
     Indication: LUNG ADENOCARCINOMA STAGE IV
     Dosage: 350 MILLIGRAM, Q3W
     Route: 041
     Dates: start: 20200807, end: 20201009
  2. KEYTRUDA [Suspect]
     Active Substance: PEMBROLIZUMAB
     Indication: LUNG ADENOCARCINOMA STAGE IV
     Dosage: 200 MILLIGRAM, Q3W
     Route: 041
     Dates: start: 20200807, end: 20201009
  3. PEMETREXED DISODIUM [Suspect]
     Active Substance: PEMETREXED DISODIUM
     Indication: LUNG ADENOCARCINOMA STAGE IV
     Dosage: 750 MILLIGRAM, Q3W
     Route: 041
     Dates: start: 20200807, end: 20201009

REACTIONS (10)
  - Rash [Recovered/Resolved]
  - Palpitations [Unknown]
  - Pneumonia [Fatal]
  - Liver disorder [Unknown]
  - Renal impairment [Unknown]
  - Pneumonia bacterial [Fatal]
  - Respiratory failure [Fatal]
  - Interstitial lung disease [Fatal]
  - Hyperkalaemia [Unknown]
  - Tachycardia [Unknown]

NARRATIVE: CASE EVENT DATE: 20200829
